FAERS Safety Report 14026616 (Version 1)
Quarter: 2017Q3

REPORT INFORMATION
  Report Type: Spontaneous
  Country: US (occurrence: US)
  Receive Date: 20170929
  Receipt Date: 20170929
  Transmission Date: 20171128
  Serious: Yes (Hospitalization)
  Sender: FDA-Public Use
  Company Number: US-CLARIS PHARMASERVICES-2028147

PATIENT
  Sex: Female

DRUGS (2)
  1. 1/2 NS WITH SODIUM BICARBONATE IV FLUID [Concomitant]
  2. CIPROFLOXACIN. [Suspect]
     Active Substance: CIPROFLOXACIN
     Indication: URINARY TRACT INFECTION
     Route: 042
     Dates: start: 20170910, end: 20170914

REACTIONS (1)
  - Infusion site reaction [Unknown]

NARRATIVE: CASE EVENT DATE: 20170914
